FAERS Safety Report 4465276-3 (Version None)
Quarter: 2004Q4

REPORT INFORMATION
  Report Type: 
  Country: None (occurrence: None)
  Receive Date: 20041004
  Receipt Date: 20040920
  Transmission Date: 20050328
  Serious: Yes (Other)
  Sender: FDA-Public Use
  Company Number: US-JNJFOC-20040906550

PATIENT
  Sex: Male
  Weight: 136.08 kg

DRUGS (5)
  1. REMICADE [Suspect]
     Dosage: 4 VIALS
     Route: 042
  2. EXCEDRIN (MIGRAINE) [Concomitant]
  3. EXCEDRIN (MIGRAINE) [Concomitant]
  4. EXCEDRIN (MIGRAINE) [Concomitant]
  5. EXCEDRIN (MIGRAINE) [Concomitant]
     Indication: HEADACHE

REACTIONS (8)
  - ABDOMINAL PAIN [None]
  - BLOOD CHOLESTEROL INCREASED [None]
  - DIZZINESS [None]
  - HEPATITIS [None]
  - HYPERHIDROSIS [None]
  - NAUSEA [None]
  - NEPHROLITHIASIS [None]
  - WHITE BLOOD CELL COUNT DECREASED [None]
